FAERS Safety Report 17863512 (Version 1)
Quarter: 2020Q2

REPORT INFORMATION
  Report Type: Report from Study
  Country: None (occurrence: US)
  Receive Date: 20200605
  Receipt Date: 20200605
  Transmission Date: 20200714
  Serious: No
  Sender: FDA-Public Use
  Company Number: US-US WORLDMEDS, LLC-USW201907-001244

PATIENT
  Sex: Female

DRUGS (5)
  1. REQUIP XL [Concomitant]
     Active Substance: ROPINIROLE HYDROCHLORIDE
     Dosage: 22 MG IN AM
  2. ZOLPIDEM [Concomitant]
     Active Substance: ZOLPIDEM TARTRATE
     Dosage: 10 MG AT BEDTIME
  3. APOKYN [Suspect]
     Active Substance: APOMORPHINE HYDROCHLORIDE
     Indication: PARKINSON^S DISEASE
     Route: 058
  4. REQUIP XL [Concomitant]
     Active Substance: ROPINIROLE HYDROCHLORIDE
     Dosage: 1 MG MID DAY
  5. STALEVO [Concomitant]
     Active Substance: CARBIDOPA\ENTACAPONE\LEVODOPA
     Dosage: 50 MG EVERY 3 HOURS

REACTIONS (1)
  - Speech disorder [Unknown]
